FAERS Safety Report 13832994 (Version 1)
Quarter: 2017Q3

REPORT INFORMATION
  Report Type: Spontaneous
  Country: US (occurrence: US)
  Receive Date: 20170803
  Receipt Date: 20170803
  Transmission Date: 20171127
  Serious: Yes (Disabling)
  Sender: FDA-Public Use
  Company Number: None

PATIENT
  Age: 73 Year
  Sex: Female
  Weight: 49.05 kg

DRUGS (10)
  1. PROLIA [Suspect]
     Active Substance: DENOSUMAB
     Dosage: 2 X^S A YEAR;INJECTION IN STOMACH?
  2. FOLIC ACID. [Concomitant]
     Active Substance: FOLIC ACID
  3. KRILL OIL [Concomitant]
     Active Substance: DIETARY SUPPLEMENT
  4. VITAMIN B12 [Concomitant]
     Active Substance: CYANOCOBALAMIN
  5. COUMADIN [Concomitant]
     Active Substance: WARFARIN SODIUM
  6. ASPERIN [Concomitant]
  7. MAGNESIUM [Concomitant]
     Active Substance: MAGNESIUM
  8. D-3 [Concomitant]
     Active Substance: CHOLECALCIFEROL
  9. ARIMIDEX [Concomitant]
     Active Substance: ANASTROZOLE
  10. DILTIAZEM. [Concomitant]
     Active Substance: DILTIAZEM

REACTIONS (5)
  - Headache [None]
  - Weight decreased [None]
  - Mumps [None]
  - Osteonecrosis of jaw [None]
  - International normalised ratio abnormal [None]

NARRATIVE: CASE EVENT DATE: 20161225
